FAERS Safety Report 4853708-8 (Version None)
Quarter: 2005Q4

REPORT INFORMATION
  Report Type: 
  Country: None (occurrence: None)
  Receive Date: 20051212
  Receipt Date: 20051121
  Transmission Date: 20060501
  Serious: Yes (Life-Threatening)
  Sender: FDA-Public Use
  Company Number: ES200512000040

PATIENT
  Age: 45 Year
  Sex: Female

DRUGS (5)
  1. ZYPREXA [Suspect]
     Indication: SCHIZOPHRENIA
     Dosage: 5 MG, DAILY (1/D), ORAL
     Route: 048
     Dates: start: 20050601, end: 20050823
  2. IDALPREM (LORAZEPAM) [Concomitant]
  3. ANAFRANIL [Concomitant]
  4. DOBUPAL (VENLAFAXINE HYDROCHLORIDE) [Concomitant]
  5. EFORTIL (ETILEFRINE HYDROCHLORIDE) [Concomitant]

REACTIONS (2)
  - GRANULOCYTOPENIA [None]
  - LEUKOPENIA [None]
